FAERS Safety Report 22270227 (Version 1)
Quarter: 2023Q2

REPORT INFORMATION
  Report Type: Spontaneous
  Country: US (occurrence: None)
  Receive Date: 20230428
  Receipt Date: 20230428
  Transmission Date: 20230721
  Serious: No
  Sender: FDA-Public Use
  Company Number: None

PATIENT
  Age: 38 Year
  Sex: Female
  Weight: 69.75 kg

DRUGS (8)
  1. MIRENA [Suspect]
     Active Substance: LEVONORGESTREL
     Indication: Contraception
     Dosage: OTHER QUANTITY : 1 IUD;?OTHER FREQUENCY : ONCE;?
     Route: 067
  2. VYVANSE [Concomitant]
     Active Substance: LISDEXAMFETAMINE DIMESYLATE
  3. MIRENA [Concomitant]
     Active Substance: LEVONORGESTREL
  4. VITAMIN D [Concomitant]
     Active Substance: VITAMIN D NOS
  5. MAGNESIUM [Concomitant]
     Active Substance: MAGNESIUM
  6. stress assist [Concomitant]
  7. ADEMETIONINE [Concomitant]
     Active Substance: ADEMETIONINE
  8. Quecetrin with Bromelain [Concomitant]

REACTIONS (4)
  - Dysmenorrhoea [None]
  - Therapeutic product effect decreased [None]
  - Unexpected vaginal bleeding on hormonal IUD [None]
  - Hormone level abnormal [None]

NARRATIVE: CASE EVENT DATE: 20230102
